FAERS Safety Report 6955251-9 (Version None)
Quarter: 2010Q3

REPORT INFORMATION
  Report Type: 
  Country: None (occurrence: None)
  Receive Date: 20100830
  Receipt Date: 20100819
  Transmission Date: 20110219
  Serious: Yes (Hospitalization)
  Sender: FDA-Public Use
  Company Number: JP-ASTRAZENECA-2010SE26716

PATIENT
  Age: 70 Year
  Sex: Female
  Weight: 48 kg

DRUGS (8)
  1. IRESSA [Suspect]
     Indication: NON-SMALL CELL LUNG CANCER
     Route: 048
     Dates: start: 20100426, end: 20100522
  2. IRESSA [Suspect]
     Route: 048
     Dates: start: 20100622, end: 20100626
  3. MICARDIS [Concomitant]
     Indication: HYPERTENSION
     Route: 048
     Dates: start: 20100101
  4. AMLODIPINE BESYLATE [Concomitant]
     Indication: HYPERTENSION
     Route: 048
     Dates: start: 20100101
  5. DECADRON [Concomitant]
     Route: 048
     Dates: start: 20100101
  6. DOXAZOSIN MESYLATE [Concomitant]
     Indication: HYPERTENSION
     Route: 048
     Dates: start: 20100101
  7. LAC-B [Concomitant]
     Indication: ENTEROCOLITIS
     Route: 048
     Dates: start: 20100101
  8. OXYCONTIN [Concomitant]
     Indication: CANCER PAIN
     Route: 048
     Dates: start: 20100701

REACTIONS (1)
  - DIARRHOEA [None]
